FAERS Safety Report 14193561 (Version 1)
Quarter: 2017Q4

REPORT INFORMATION
  Report Type: Spontaneous
  Country: US (occurrence: US)
  Receive Date: 20171115
  Receipt Date: 20171115
  Transmission Date: 20180321
  Serious: No
  Sender: FDA-Public Use
  Company Number: US-BAUSCH-BL-2017-007808

PATIENT
  Sex: Male

DRUGS (1)
  1. XENAZINE [Suspect]
     Active Substance: TETRABENAZINE
     Indication: HUNTINGTON^S DISEASE
     Dosage: 1 ? TABLETS TWICE A DAY
     Route: 048
     Dates: start: 20150214

REACTIONS (4)
  - Nausea [Unknown]
  - Constipation [Unknown]
  - Pollakiuria [Unknown]
  - Drug administration error [Unknown]
